FAERS Safety Report 6768323-9 (Version None)
Quarter: 2010Q2

REPORT INFORMATION
  Report Type: 
  Country: None (occurrence: None)
  Receive Date: 20100614
  Receipt Date: 20100601
  Transmission Date: 20101027
  Serious: Yes (Hospitalization)
  Sender: FDA-Public Use
  Company Number: FR-ELI_LILLY_AND_COMPANY-FR201002000668

PATIENT
  Age: 82 Year
  Sex: Female
  Weight: 50.5 kg

DRUGS (10)
  1. FORTEO [Suspect]
     Indication: OSTEOPOROTIC FRACTURE
     Dosage: 20 UG, DAILY (1/D)
     Route: 065
     Dates: start: 20090212, end: 20100101
  2. FORTEO [Suspect]
     Dosage: 20 UG, DAILY (1/D)
     Route: 058
     Dates: start: 20100201
  3. TEMERIT                            /01339101/ [Concomitant]
     Dosage: UNK, UNKNOWN
     Route: 065
  4. COVERSYL [Concomitant]
     Dosage: UNK, UNKNOWN
     Route: 065
  5. PARIET [Concomitant]
     Dosage: UNK, UNKNOWN
     Route: 065
  6. STABLON [Concomitant]
     Dosage: UNK, UNKNOWN
     Route: 065
  7. LORAZEPAM [Concomitant]
     Dosage: UNK, UNKNOWN
     Route: 065
  8. EZETROL [Concomitant]
     Dosage: UNK, UNKNOWN
     Route: 065
  9. LIPANTHYL [Concomitant]
  10. CORDARONE [Concomitant]

REACTIONS (2)
  - ARTERIAL THROMBOSIS LIMB [None]
  - PULMONARY OEDEMA [None]
